FAERS Safety Report 11330415 (Version 1)
Quarter: 2015Q3

REPORT INFORMATION
  Report Type: Spontaneous
  Country: GB (occurrence: GB)
  Receive Date: 20150803
  Receipt Date: 20150803
  Transmission Date: 20151125
  Serious: Yes (Life-Threatening, Other)
  Sender: FDA-Public Use
  Company Number: GB-WATSON-2015-15764

PATIENT
  Age: 60 Year

DRUGS (1)
  1. SUMATRIPTAN. [Suspect]
     Active Substance: SUMATRIPTAN
     Indication: MIGRAINE
     Dosage: 100 MG, UNK
     Route: 048

REACTIONS (5)
  - Anxiety [Unknown]
  - Chest pain [Unknown]
  - Hyperhidrosis [Unknown]
  - Prinzmetal angina [Unknown]
  - Muscle spasms [Unknown]
